FAERS Safety Report 7529321-0 (Version None)
Quarter: 2011Q2

REPORT INFORMATION
  Report Type: 
  Country: None (occurrence: None)
  Receive Date: 20110607
  Receipt Date: 20110531
  Transmission Date: 20111010
  Serious: Yes (Death)
  Sender: FDA-Public Use
  Company Number: US-PURDUE-USA-2010-0052381

PATIENT
  Sex: Male

DRUGS (3)
  1. OXYCONTIN [Suspect]
     Indication: FIBROMYALGIA
  2. OXYCONTIN [Suspect]
     Indication: ARTHRITIS
  3. OXYCONTIN [Suspect]
     Indication: PAIN
     Dosage: 320 MG, TID
     Route: 048
     Dates: start: 20100801

REACTIONS (3)
  - INADEQUATE ANALGESIA [None]
  - DEATH [None]
  - DRUG EFFECT DECREASED [None]
